FAERS Safety Report 17276774 (Version 4)
Quarter: 2022Q3

REPORT INFORMATION
  Report Type: Spontaneous
  Country: US (occurrence: US)
  Receive Date: 20200116
  Receipt Date: 20220727
  Transmission Date: 20221026
  Serious: Yes (Other)
  Sender: FDA-Public Use
  Company Number: US-PFIZER INC-2019204787

PATIENT
  Age: 58 Year
  Sex: Male

DRUGS (2)
  1. XELJANZ XR [Suspect]
     Active Substance: TOFACITINIB CITRATE
     Dosage: 11 MG, 1X/DAY
     Route: 048
  2. XELJANZ [Concomitant]
     Active Substance: TOFACITINIB CITRATE
     Dosage: 10 MG, 2X/DAY
     Route: 048

REACTIONS (5)
  - Pneumonia [Unknown]
  - Bronchitis [Not Recovered/Not Resolved]
  - Illness [Unknown]
  - Cough [Unknown]
  - Wheezing [Unknown]

NARRATIVE: CASE EVENT DATE: 20210701
